FAERS Safety Report 4788790-X (Version None)
Quarter: 2005Q4

REPORT INFORMATION
  Report Type: 
  Country: None (occurrence: None)
  Receive Date: 20051004
  Receipt Date: 20050922
  Transmission Date: 20060501
  Serious: Yes (Hospitalization, Other)
  Sender: FDA-Public Use
  Company Number: HQWYE229101SEP05

PATIENT
  Age: 57 Year
  Sex: Male

DRUGS (5)
  1. RAPAMUNE [Suspect]
     Indication: PROPHYLAXIS AGAINST TRANSPLANT REJECTION
     Dosage: SEE IMAGE
     Route: 048
     Dates: start: 20050826, end: 20050826
  2. RAPAMUNE [Suspect]
     Indication: PROPHYLAXIS AGAINST TRANSPLANT REJECTION
     Dosage: SEE IMAGE
     Route: 048
     Dates: start: 20050827
  3. CYCLOSPORINE [Concomitant]
  4. OMEPRAZOLE (OMPRAZOLE) [Concomitant]
  5. ASPIRIN [Concomitant]

REACTIONS (5)
  - ACUTE MYOCARDIAL INFARCTION [None]
  - AORTIC VALVE STENOSIS [None]
  - HAEMOGLOBIN DECREASED [None]
  - VASCULAR PSEUDOANEURYSM [None]
  - WHITE BLOOD CELL COUNT INCREASED [None]
